FAERS Safety Report 7340805-0 (Version None)
Quarter: 2011Q1

REPORT INFORMATION
  Report Type: 
  Country: None (occurrence: None)
  Receive Date: 20110309
  Receipt Date: 20110222
  Transmission Date: 20110831
  Serious: Yes (Death, Hospitalization, Other)
  Sender: FDA-Public Use
  Company Number: IL-AMGEN-ISRSP2011008411

PATIENT
  Age: 57 Year
  Sex: Female

DRUGS (16)
  1. DOXORUBICIN [Concomitant]
     Dosage: UNK
     Dates: start: 20080709
  2. PREDNISONE [Concomitant]
     Dosage: UNK
     Dates: start: 20080709
  3. FEXOFENADINE [Concomitant]
  4. POTASSIUM PHOSPHATE DIBASIC [Concomitant]
  5. NEULASTIM [Suspect]
     Indication: PRODUCT USED FOR UNKNOWN INDICATION
     Dosage: UNK
  6. TAZOCIN [Concomitant]
  7. MAXITROL                           /00393601/ [Concomitant]
  8. MABTHERA [Suspect]
     Indication: NON-HODGKIN'S LYMPHOMA
     Dosage: 700 MG, UNK
     Route: 042
  9. ONCOVIN [Concomitant]
     Dosage: UNK
     Dates: start: 20080709
  10. PHENERGAN                          /00033002/ [Concomitant]
  11. CYCLOPHOSPHAMIDE [Concomitant]
     Dosage: UNK
     Dates: start: 20080709
  12. VANCOMYCIN [Concomitant]
  13. ELATROLET [Concomitant]
  14. LYRICA [Concomitant]
  15. FLUDARA [Concomitant]
     Dosage: UNK
  16. POVIDONE                           /00042801/ [Concomitant]

REACTIONS (20)
  - HYPERSENSITIVITY [None]
  - THROMBOCYTOPENIA [None]
  - HEPATIC STEATOSIS [None]
  - DERMATITIS EXFOLIATIVE [None]
  - NEUTROPENIA [None]
  - HEPATIC ENZYME INCREASED [None]
  - FAT TISSUE INCREASED [None]
  - URTICARIA [None]
  - INFECTION [None]
  - STEVENS-JOHNSON SYNDROME [None]
  - PARAESTHESIA [None]
  - LIVER DISORDER [None]
  - URINE ABNORMALITY [None]
  - HYPERURICAEMIA [None]
  - TOXIC EPIDERMAL NECROLYSIS [None]
  - OEDEMA [None]
  - GRANULOCYTOPENIA [None]
  - RASH [None]
  - PYREXIA [None]
  - CHILLS [None]
